FAERS Safety Report 14284278 (Version 5)
Quarter: 2018Q4

REPORT INFORMATION
  Report Type: Spontaneous
  Country: DK (occurrence: DK)
  Receive Date: 20171214
  Receipt Date: 20181129
  Transmission Date: 20190204
  Serious: Yes (Hospitalization, Other)
  Sender: FDA-Public Use
  Company Number: DK-AUROBINDO-AUR-APL-2017-45289

PATIENT
  Age: 75 Year
  Sex: Female
  Weight: 64 kg

DRUGS (8)
  1. CALCIUM CARBONATE AND VITAMIN D [Concomitant]
     Active Substance: CALCIUM CARBONATE\VITAMIN D
     Indication: MINERAL SUPPLEMENTATION
     Dosage: STYRKE: UKENDT.
     Route: 048
     Dates: start: 20110909, end: 201404
  2. FOLIC ACID. [Concomitant]
     Active Substance: FOLIC ACID
     Indication: POLYARTHRITIS
     Dosage: STYRKE: UKENDT. DOSIS: UKENDT.
     Route: 048
     Dates: start: 201306, end: 201404
  3. PANCILLIN                          /00001801/ [Concomitant]
     Active Substance: PENICILLIN V
     Indication: INFECTION
     Dosage: STYRKE: 1 MIL.IE.
     Route: 048
     Dates: start: 20171019, end: 20171215
  4. CALCIUM CARBONATE AND VITAMIN D [Concomitant]
     Active Substance: CALCIUM CARBONATE\VITAMIN D
     Dosage: STYRKE: UKENDT.
     Route: 048
     Dates: start: 20110909, end: 201404
  5. METHOTREXATE. [Concomitant]
     Active Substance: METHOTREXATE
     Indication: POLYARTHRITIS
     Dosage: STYRKE: 10 MG.
     Route: 048
     Dates: start: 201306, end: 201404
  6. ALENDRONIC ACID AUROBINDO 70 MG TABLETS [Suspect]
     Active Substance: ALENDRONIC ACID
     Indication: POLYMYALGIA RHEUMATICA
     Dosage: 70 MG, EVERY WEEK
     Route: 048
     Dates: start: 20110909, end: 201712
  7. METRONIDAZOL                       /00012501/ [Concomitant]
     Active Substance: METRONIDAZOLE
     Indication: INFECTION
     Dosage: STYRKE: 50 MG.
     Route: 048
     Dates: start: 20171019, end: 20171214
  8. PREDNISOLONE. [Concomitant]
     Active Substance: PREDNISOLONE
     Indication: POLYMYALGIA RHEUMATICA
     Dosage: VARIERENDE DOSER
     Route: 048
     Dates: start: 201108, end: 201206

REACTIONS (10)
  - Fracture [Not Recovered/Not Resolved]
  - Tenderness [Recovered/Resolved]
  - Purulence [Recovered/Resolved]
  - Exposed bone in jaw [Recovered/Resolved]
  - Sequestrectomy [Recovered/Resolved]
  - Osteonecrosis of jaw [Recovering/Resolving]
  - Jaw operation [Recovered/Resolved]
  - Oedema mouth [Recovered/Resolved]
  - Tooth extraction [Recovered/Resolved]
  - Feeding disorder [Not Recovered/Not Resolved]

NARRATIVE: CASE EVENT DATE: 2017
